FAERS Safety Report 21956453 (Version 2)
Quarter: 2023Q1

REPORT INFORMATION
  Report Type: Other
  Country: US (occurrence: None)
  Receive Date: 20230206
  Receipt Date: 20230219
  Transmission Date: 20230418
  Serious: Yes (Other)
  Sender: FDA-Public Use
  Company Number: US-ROCHE-3274088

PATIENT
  Age: 61 Year
  Sex: Female

DRUGS (2)
  1. OCREVUS [Suspect]
     Active Substance: OCRELIZUMAB
     Indication: Relapsing-remitting multiple sclerosis
     Dosage: DATE OF TREATMENT:09/JUL/2021,23/JUN/2021,10/JAN/2022,18/JUL/2022,23/JAN/2023
     Route: 065
  2. AVONEX [Concomitant]
     Active Substance: INTERFERON BETA-1A

REACTIONS (2)
  - Urinary tract infection [Unknown]
  - Blood pressure decreased [Recovered/Resolved]
